FAERS Safety Report 22960300 (Version 2)
Quarter: 2024Q1

REPORT INFORMATION
  Report Type: Spontaneous
  Country: US (occurrence: US)
  Receive Date: 20230920
  Receipt Date: 20240128
  Transmission Date: 20240409
  Serious: No
  Sender: FDA-Public Use
  Company Number: US-PCCINC-2023-PPL-000314

PATIENT

DRUGS (1)
  1. GABLOFEN [Suspect]
     Active Substance: BACLOFEN
     Indication: Product used for unknown indication
     Dosage: 1197 MICROGRAM/DAY
     Route: 037

REACTIONS (3)
  - Pain [Unknown]
  - Muscle spasticity [Unknown]
  - Tachycardia [Unknown]
